FAERS Safety Report 24532619 (Version 2)
Quarter: 2024Q4

REPORT INFORMATION
  Report Type: Report from Study
  Country: US (occurrence: US)
  Receive Date: 20241022
  Receipt Date: 20241129
  Transmission Date: 20250115
  Serious: Yes (Other)
  Sender: SERVIER
  Company Number: US-SERVIER-S24013283

PATIENT

DRUGS (1)
  1. VORASIDENIB [Suspect]
     Active Substance: VORASIDENIB
     Indication: Brain neoplasm malignant
     Dosage: 40 MG, QD
     Route: 048
     Dates: start: 20240907, end: 202410

REACTIONS (5)
  - Ventricular extrasystoles [Recovered/Resolved]
  - Palpitations [Recovered/Resolved]
  - Dyspnoea [Recovered/Resolved]
  - Chest discomfort [Recovered/Resolved]
  - Product dose omission issue [Recovered/Resolved]

NARRATIVE: CASE EVENT DATE: 20240909
